FAERS Safety Report 17725942 (Version 1)
Quarter: 2020Q2

REPORT INFORMATION
  Report Type: Spontaneous
  Country: TR (occurrence: TR)
  Receive Date: 20200429
  Receipt Date: 20200429
  Transmission Date: 20200714
  Serious: Yes (Other)
  Sender: FDA-Public Use
  Company Number: NVSC2020TR093799

PATIENT
  Age: 68 Year
  Sex: Male

DRUGS (3)
  1. SANDOSTATIN LAR DEPOT [Suspect]
     Active Substance: OCTREOTIDE ACETATE
     Dosage: 20 MG
     Route: 065
  2. SANDOSTATIN LAR DEPOT [Suspect]
     Active Substance: OCTREOTIDE ACETATE
     Indication: ACROMEGALY
     Dosage: 30 MG
     Route: 065
     Dates: start: 1997
  3. SANDOSTATIN LAR DEPOT [Suspect]
     Active Substance: OCTREOTIDE ACETATE
     Dosage: 10 MG EVERY 28 DAYS
     Route: 065

REACTIONS (5)
  - Product quality issue [Unknown]
  - Glucose tolerance decreased [Unknown]
  - Neoplasm malignant [Unknown]
  - Dihydrotestosterone decreased [Unknown]
  - Sepsis [Unknown]

NARRATIVE: CASE EVENT DATE: 2004
